FAERS Safety Report 21329857 (Version 1)
Quarter: 2022Q3

REPORT INFORMATION
  Report Type: Report from Study
  Country: US (occurrence: US)
  Receive Date: 20220913
  Receipt Date: 20220913
  Transmission Date: 20221027
  Serious: Yes (Hospitalization, Other)
  Sender: FDA-Public Use
  Company Number: US-BRISTOL-MYERS SQUIBB COMPANY-2022-101655

PATIENT
  Age: 86 Year
  Sex: Female
  Weight: 46.72 kg

DRUGS (2)
  1. REVLIMID [Suspect]
     Active Substance: LENALIDOMIDE
     Indication: Plasma cell myeloma
     Dosage: OFF FOR 7 DAYS
     Route: 048
     Dates: start: 20190104
  2. REVLIMID [Suspect]
     Active Substance: LENALIDOMIDE
     Indication: Neoplasm malignant

REACTIONS (4)
  - Rib fracture [Unknown]
  - Pruritus [Unknown]
  - Acute febrile neutrophilic dermatosis [Unknown]
  - Rash [Unknown]
